FAERS Safety Report 12337996 (Version 2)
Quarter: 2016Q2

REPORT INFORMATION
  Report Type: Spontaneous
  Country: US (occurrence: US)
  Receive Date: 20160505
  Receipt Date: 20160608
  Transmission Date: 20160815
  Serious: Yes (Other)
  Sender: FDA-Public Use
  Company Number: US-MDT-ADR-2016-00808

PATIENT
  Age: 65 Year
  Sex: Female

DRUGS (1)
  1. BACLOFEN. [Suspect]
     Active Substance: BACLOFEN
     Dosage: 80.04 MCG/ DAY
     Route: 037

REACTIONS (3)
  - No therapeutic response [Unknown]
  - Lower limb fracture [Unknown]
  - Dyskinesia [Unknown]
